FAERS Safety Report 12890632 (Version 1)
Quarter: 2016Q4

REPORT INFORMATION
  Report Type: Spontaneous
  Country: US (occurrence: US)
  Receive Date: 20161027
  Receipt Date: 20161027
  Transmission Date: 20170207
  Serious: No
  Sender: FDA-Public Use
  Company Number: US-JAZZ-2016-US-015812

PATIENT
  Sex: Female

DRUGS (57)
  1. OMEPRAZOLE. [Concomitant]
     Active Substance: OMEPRAZOLE
  2. ACYCLOVIR. [Concomitant]
     Active Substance: ACYCLOVIR
  3. BUTALBITAL COMPOUND [Concomitant]
     Active Substance: ASPIRIN\BUTALBITAL\CAFFEINE
  4. BYETTA [Concomitant]
     Active Substance: EXENATIDE
  5. PREDNISOLONE. [Concomitant]
     Active Substance: PREDNISOLONE
  6. REQUIP [Concomitant]
     Active Substance: ROPINIROLE HYDROCHLORIDE
  7. SENNOSIDE [Concomitant]
     Active Substance: SENNOSIDES
  8. FLUCONAZOLE. [Concomitant]
     Active Substance: FLUCONAZOLE
  9. ALBUTEROL SULFATE. [Concomitant]
     Active Substance: ALBUTEROL SULFATE
  10. XYREM [Suspect]
     Active Substance: SODIUM OXYBATE
     Dosage: 4 G, BID
     Route: 048
     Dates: start: 201605
  11. DIOVAN [Concomitant]
     Active Substance: VALSARTAN
  12. LYRICA [Concomitant]
     Active Substance: PREGABALIN
  13. ZETIA [Concomitant]
     Active Substance: EZETIMIBE
  14. ATIVAN [Concomitant]
     Active Substance: LORAZEPAM
  15. POTASSIUM ACETATE. [Concomitant]
     Active Substance: POTASSIUM ACETATE
  16. AMOXIL [Concomitant]
     Active Substance: AMOXICILLIN
  17. CLONAZEPAM. [Concomitant]
     Active Substance: CLONAZEPAM
  18. INDERAL [Concomitant]
     Active Substance: PROPRANOLOL HYDROCHLORIDE
  19. CRESTOR [Concomitant]
     Active Substance: ROSUVASTATIN CALCIUM
  20. CYMBALTA [Concomitant]
     Active Substance: DULOXETINE HYDROCHLORIDE
  21. GABAPENTIN. [Concomitant]
     Active Substance: GABAPENTIN
  22. DIAZEPAM. [Concomitant]
     Active Substance: DIAZEPAM
  23. SEROQUEL [Concomitant]
     Active Substance: QUETIAPINE FUMARATE
  24. ABILIFY [Concomitant]
     Active Substance: ARIPIPRAZOLE
  25. BRINTELLIX [Concomitant]
     Active Substance: VORTIOXETINE HYDROBROMIDE
  26. CLONIDINE HCL [Concomitant]
     Active Substance: CLONIDINE HYDROCHLORIDE
  27. VALTREX [Concomitant]
     Active Substance: VALACYCLOVIR HYDROCHLORIDE
  28. EXFORGE [Concomitant]
     Active Substance: AMLODIPINE BESYLATE\VALSARTAN
  29. TRAMADOL HCL [Concomitant]
     Active Substance: TRAMADOL HYDROCHLORIDE
  30. LEVAQUIN [Concomitant]
     Active Substance: LEVOFLOXACIN
  31. LEXAPRO [Concomitant]
     Active Substance: ESCITALOPRAM OXALATE
  32. PROPRANOLOL [Suspect]
     Active Substance: PROPRANOLOL\PROPRANOLOL HYDROCHLORIDE
     Indication: PRODUCT USED FOR UNKNOWN INDICATION
     Dosage: UNKNOWN DOSE
     Dates: start: 20140210, end: 20160229
  33. KLOR-CON M10 [Concomitant]
     Active Substance: POTASSIUM CHLORIDE
  34. PROVENTIL HFA [Concomitant]
     Active Substance: ALBUTEROL SULFATE
  35. DYAZIDE [Concomitant]
     Active Substance: HYDROCHLOROTHIAZIDE\TRIAMTERENE
  36. IRON [Concomitant]
     Active Substance: IRON
  37. VALSARTAN. [Concomitant]
     Active Substance: VALSARTAN
  38. PREDNISONE. [Concomitant]
     Active Substance: PREDNISONE
  39. XYREM [Suspect]
     Active Substance: SODIUM OXYBATE
     Indication: NARCOLEPSY
     Dosage: 2.25 G, BID
     Route: 048
     Dates: start: 201106, end: 201109
  40. XYREM [Suspect]
     Active Substance: SODIUM OXYBATE
     Indication: CATAPLEXY
     Dosage: DOSE ADJUSTMENTS
     Route: 048
     Dates: start: 201109, end: 201605
  41. BUMETANIDE. [Concomitant]
     Active Substance: BUMETANIDE
  42. AMLODIPINE BESYLATE. [Concomitant]
     Active Substance: AMLODIPINE BESYLATE
  43. AUGMENTIN [Concomitant]
     Active Substance: AMOXICILLIN\CLAVULANATE POTASSIUM
  44. CLOBETASOL [Concomitant]
     Active Substance: CLOBETASOL
  45. LAMICTAL [Concomitant]
     Active Substance: LAMOTRIGINE
  46. FLEXERIL [Concomitant]
     Active Substance: CYCLOBENZAPRINE HYDROCHLORIDE
  47. PROPRANOLOL [Suspect]
     Active Substance: PROPRANOLOL\PROPRANOLOL HYDROCHLORIDE
     Dosage: UNKNOWN DOSE
     Dates: start: 20150826, end: 20150826
  48. IBUPROFEN. [Concomitant]
     Active Substance: IBUPROFEN
  49. CELEBREX [Concomitant]
     Active Substance: CELECOXIB
  50. ZOCOR [Concomitant]
     Active Substance: SIMVASTATIN
  51. BROMFED [Concomitant]
     Active Substance: BROMPHENIRAMINE MALEATE\DEXTROMETHORPHAN HYDROBROMIDE\PSEUDOEPHEDRINE HYDROCHLORIDE
  52. MELOXICAM. [Concomitant]
     Active Substance: MELOXICAM
  53. MUCINEX [Concomitant]
     Active Substance: GUAIFENESIN
  54. MACA [Concomitant]
  55. AZITHROMYCIN ANHYDROUS. [Concomitant]
     Active Substance: AZITHROMYCIN ANHYDROUS
  56. TESSALON [Concomitant]
     Active Substance: BENZONATATE
  57. ADDERALL [Concomitant]
     Active Substance: AMPHETAMINE ASPARTATE\AMPHETAMINE SULFATE\DEXTROAMPHETAMINE SACCHARATE\DEXTROAMPHETAMINE SULFATE

REACTIONS (6)
  - Intentional product use issue [Unknown]
  - Renal disorder [Unknown]
  - Unevaluable event [Unknown]
  - Chest X-ray abnormal [Unknown]
  - Anxiety [Unknown]
  - Activities of daily living impaired [Unknown]
